FAERS Safety Report 19605820 (Version 2)
Quarter: 2021Q3

REPORT INFORMATION
  Report Type: Spontaneous
  Country: CN (occurrence: CN)
  Receive Date: 20210723
  Receipt Date: 20210806
  Transmission Date: 20211014
  Serious: Yes (Other)
  Sender: FDA-Public Use
  Company Number: CN-ELI_LILLY_AND_COMPANY-CN202107005353

PATIENT
  Age: 63 Year
  Sex: Female
  Weight: 47 kg

DRUGS (7)
  1. FORSTEO 250UG/ML [Suspect]
     Active Substance: TERIPARATIDE
     Indication: HIP FRACTURE
     Dosage: 20 UG, DAILY
     Route: 058
     Dates: start: 202005, end: 202009
  2. ROCALTROL [Concomitant]
     Active Substance: CALCITRIOL
     Indication: PRODUCT USED FOR UNKNOWN INDICATION
  3. STILNOX [Concomitant]
     Active Substance: ZOLPIDEM TARTRATE
     Indication: PRODUCT USED FOR UNKNOWN INDICATION
  4. FORSTEO 250UG/ML [Suspect]
     Active Substance: TERIPARATIDE
     Indication: THORACIC VERTEBRAL FRACTURE
     Dosage: 20 UG, DAILY
     Route: 058
     Dates: start: 202104
  5. FORSTEO 250UG/ML [Suspect]
     Active Substance: TERIPARATIDE
     Indication: HIP FRACTURE
     Dosage: 20 UG, DAILY
     Route: 058
     Dates: start: 202005, end: 202009
  6. FORSTEO 250UG/ML [Suspect]
     Active Substance: TERIPARATIDE
     Indication: THORACIC VERTEBRAL FRACTURE
     Dosage: 20 UG, DAILY
     Route: 058
     Dates: start: 202104
  7. CALCIUM [Concomitant]
     Active Substance: CALCIUM
     Indication: PRODUCT USED FOR UNKNOWN INDICATION

REACTIONS (13)
  - Bone density decreased [Unknown]
  - Thyroid function test abnormal [Unknown]
  - Bone metabolism biochemical marker increased [Recovered/Resolved]
  - Off label use [Unknown]
  - Renal failure [Unknown]
  - Chromaturia [Unknown]
  - Injection site pain [Unknown]
  - Crystal urine present [Unknown]
  - Hypotension [Unknown]
  - Dizziness [Unknown]
  - Arthralgia [Unknown]
  - Gout [Unknown]
  - Product storage error [Unknown]
